FAERS Safety Report 18127909 (Version 1)
Quarter: 2020Q3

REPORT INFORMATION
  Report Type: Spontaneous
  Country: US (occurrence: US)
  Receive Date: 20200807
  Receipt Date: 20200807
  Transmission Date: 20201103
  Serious: Yes (Hospitalization)
  Sender: FDA-Public Use
  Company Number: None

PATIENT
  Sex: Male
  Weight: 110.22 kg

DRUGS (2)
  1. RITUXIMAB. [Suspect]
     Active Substance: RITUXIMAB
     Dates: end: 20200729
  2. CYTARABINE. [Suspect]
     Active Substance: CYTARABINE
     Dates: end: 20200731

REACTIONS (5)
  - Night sweats [None]
  - Pyrexia [None]
  - Dyspnoea [None]
  - Tachycardia [None]
  - Chest pain [None]

NARRATIVE: CASE EVENT DATE: 20200806
